FAERS Safety Report 10996476 (Version 1)
Quarter: 2015Q2

REPORT INFORMATION
  Report Type: Spontaneous
  Country: US (occurrence: None)
  Receive Date: 20150407
  Receipt Date: 20150407
  Transmission Date: 20150821
  Serious: Yes (Death)
  Sender: FDA-Public Use
  Company Number: None

PATIENT
  Age: 62 Year
  Sex: Female
  Weight: 141 kg

DRUGS (7)
  1. LEVOTHYROXINE [Concomitant]
     Active Substance: LEVOTHYROXINE
  2. SERTRALINE [Concomitant]
     Active Substance: SERTRALINE HYDROCHLORIDE
  3. CALCIUM CARBONATE- VITAMIN D [Concomitant]
  4. ALDESLEUKIN [Suspect]
     Active Substance: ALDESLEUKIN
     Indication: METASTATIC RENAL CELL CARCINOMA
     Dosage: 52,000,000 UNITS, EVERY 8 HOURS, INTRAVENOUS
     Route: 042
     Dates: start: 20130729, end: 20130802
  5. PANTOPRAZOLE [Concomitant]
     Active Substance: PANTOPRAZOLE SODIUM
  6. GLIPIZIDE. [Concomitant]
     Active Substance: GLIPIZIDE
  7. HYDROCHLOROTHIAZIDE. [Concomitant]
     Active Substance: HYDROCHLOROTHIAZIDE

REACTIONS (10)
  - Hypotension [None]
  - Oliguria [None]
  - Metabolic acidosis [None]
  - Infection [None]
  - Hyponatraemia [None]
  - Cardiac arrest [None]
  - Intestinal ischaemia [None]
  - Procedural complication [None]
  - Mental status changes [None]
  - Respiratory disorder [None]

NARRATIVE: CASE EVENT DATE: 20130803
